FAERS Safety Report 21508619 (Version 1)
Quarter: 2022Q4

REPORT INFORMATION
  Report Type: Spontaneous
  Country: CN (occurrence: CN)
  Receive Date: 20221026
  Receipt Date: 20221026
  Transmission Date: 20230112
  Serious: Yes (Disabling, Other)
  Sender: FDA-Public Use
  Company Number: CN-PFIZER INC-PV202200087113

PATIENT
  Age: 49 Year
  Sex: Male
  Weight: 65 kg

DRUGS (8)
  1. METHOTREXATE SODIUM [Suspect]
     Active Substance: METHOTREXATE SODIUM
     Indication: Chemotherapy
     Dosage: UNK(HIGH DOSE METHOTREXATE)
     Dates: start: 20221001, end: 20221001
  2. METHOTREXATE SODIUM [Suspect]
     Active Substance: METHOTREXATE SODIUM
     Dosage: 5.000 G, 1X/DAY(SLOWLY INFUSED FOR 6 TIMES (300MG+1000MG+1000MG+1000MG+1000MG+700MG))
     Route: 041
     Dates: start: 20221002, end: 20221003
  3. METHYLPREDNISOLONE SODIUM SUCCINATE [Concomitant]
     Active Substance: METHYLPREDNISOLONE SODIUM SUCCINATE
     Dosage: 40.000 MG, 1X/DAY
     Route: 041
     Dates: start: 20221001, end: 20221002
  4. RITUXIMAB [Concomitant]
     Active Substance: RITUXIMAB
     Indication: Chemotherapy
     Dosage: 600 MG, DAILY(PUMP INTO RITUXIMAB 100MG, THEN 500MG)
     Route: 041
     Dates: start: 20221001, end: 20221002
  5. DEXAMETHASONE SODIUM PHOSPHATE [Concomitant]
     Active Substance: DEXAMETHASONE SODIUM PHOSPHATE
     Indication: Hypersensitivity
     Dosage: 10.000 MG, 1X/DAY
     Route: 042
     Dates: start: 20221001, end: 20221002
  6. LORATADINE [Concomitant]
     Active Substance: LORATADINE
     Indication: Hypersensitivity
     Dosage: 10.000 MG, 1X/DAY
     Route: 048
     Dates: start: 20221001, end: 20221002
  7. LEUCOVORIN CALCIUM [Concomitant]
     Active Substance: LEUCOVORIN CALCIUM
     Indication: Detoxification
     Dosage: 25MG Q6H RESCUE
     Dates: start: 20221002, end: 20221002
  8. LEUCOVORIN CALCIUM [Concomitant]
     Active Substance: LEUCOVORIN CALCIUM
     Dosage: 100.000 MG, 4X/DAY
     Route: 030
     Dates: start: 20221003, end: 20221011

REACTIONS (2)
  - Acute kidney injury [Unknown]
  - Drug level increased [Unknown]

NARRATIVE: CASE EVENT DATE: 20221003
